FAERS Safety Report 8332307-X (Version None)
Quarter: 2012Q2

REPORT INFORMATION
  Report Type: 
  Country: None (occurrence: None)
  Receive Date: 20120503
  Receipt Date: 20120423
  Transmission Date: 20120825
  Serious: No
  Sender: FDA-Public Use
  Company Number: US-BIOGENIDEC-2012BI014490

PATIENT
  Age: 53 Year
  Sex: Female

DRUGS (4)
  1. BLOOD THINNERS (NOS) [Concomitant]
  2. AVONEX [Suspect]
     Indication: MULTIPLE SCLEROSIS
     Route: 030
  3. AVONEX [Suspect]
     Route: 030
     Dates: start: 20110514
  4. TYLENOL (CAPLET) [Concomitant]

REACTIONS (4)
  - FEELING COLD [None]
  - PAIN [None]
  - INJECTION SITE PAIN [None]
  - CONTUSION [None]
